FAERS Safety Report 9742330 (Version 1)
Quarter: 2013Q4

REPORT INFORMATION
  Report Type: Spontaneous
  Country: US (occurrence: US)
  Receive Date: 20131210
  Receipt Date: 20131210
  Transmission Date: 20140711
  Serious: No
  Sender: FDA-Public Use
  Company Number: US-ENDO PHARMACEUTICALS INC.-SPIR20110018

PATIENT
  Age: 64 Year
  Sex: Female
  Weight: 55.39 kg

DRUGS (1)
  1. SPIRONOLACTONE [Suspect]
     Indication: BLOOD PRESSURE INCREASED
     Dosage: 12.5 MG
     Route: 048

REACTIONS (2)
  - Breast swelling [Unknown]
  - Breast pain [Unknown]
